FAERS Safety Report 6728209-2 (Version None)
Quarter: 2010Q2

REPORT INFORMATION
  Report Type: 
  Country: None (occurrence: None)
  Receive Date: 20100517
  Receipt Date: 20100504
  Transmission Date: 20101027
  Serious: Yes (Disabling)
  Sender: FDA-Public Use
  Company Number: D0067410A

PATIENT
  Sex: Male
  Weight: 32.8 kg

DRUGS (1)
  1. VIANI [Suspect]
     Indication: ENDOCRINE DISORDER
     Dosage: 150MCG VARIABLE DOSE
     Route: 055
     Dates: start: 20050101, end: 20100301

REACTIONS (4)
  - CHEILITIS GRANULOMATOSA [None]
  - GINGIVAL HYPERTROPHY [None]
  - HYPERTROPHY [None]
  - LIP SWELLING [None]
